FAERS Safety Report 12154312 (Version 1)
Quarter: 2016Q1

REPORT INFORMATION
  Report Type: Report from Study
  Country: HT (occurrence: HT)
  Receive Date: 20160307
  Receipt Date: 20160307
  Transmission Date: 20160526
  Serious: Yes (Hospitalization)
  Sender: FDA-Public Use
  Company Number: HT-HETERO LABS LTD-1048743

PATIENT
  Age: 30 Year
  Sex: Female

DRUGS (2)
  1. LAMIVUDINE W/TENOFOVIR DISOPROXIL FUMARATE [Concomitant]
     Active Substance: LAMIVUDINE\TENOFOVIR DISOPROXIL FUMARATE
     Route: 048
     Dates: start: 20140923
  2. EFAVIRENZ [Suspect]
     Active Substance: EFAVIRENZ
     Indication: HIV INFECTION
     Route: 048
     Dates: start: 20140923

REACTIONS (4)
  - Anaemia [Unknown]
  - Tuberculosis [Unknown]
  - Exposure during pregnancy [Unknown]
  - Stillbirth [Unknown]
